FAERS Safety Report 10103657 (Version 1)
Quarter: 2014Q2

REPORT INFORMATION
  Report Type: Report from Study
  Country: US (occurrence: US)
  Receive Date: 20140424
  Receipt Date: 20140424
  Transmission Date: 20141212
  Serious: Yes (Hospitalization)
  Sender: FDA-Public Use
  Company Number: US-ACTELION-A-NJ2014-98001

PATIENT
  Age: 80 Year
  Sex: Female

DRUGS (4)
  1. TRACLEER [Suspect]
     Indication: PULMONARY EMBOLISM
     Dosage: UNK
     Route: 048
  2. VENTAVIS [Suspect]
     Indication: PULMONARY ARTERIAL HYPERTENSION
     Dosage: UNK
     Route: 055
  3. SILDENAFIL [Concomitant]
  4. COUMADIN [Concomitant]

REACTIONS (2)
  - Sleep apnoea syndrome [Unknown]
  - Drug dose omission [Unknown]
